FAERS Safety Report 8692272 (Version 2)
Quarter: 2012Q4

REPORT INFORMATION
  Report Type: 
  Country: US (occurrence: US)
  Receive Date: 20120730
  Receipt Date: 20121008
  Transmission Date: 20130627
  Serious: Yes (Death, Hospitalization, Other)
  Sender: FDA-Public Use
  Company Number: US-ASTRAZENECA-2012SE40501

PATIENT
  Age: 74 Year
  Sex: Male
  Weight: 68 kg

DRUGS (1)
  1. SYMBICORT [Suspect]
     Dosage: TWO TIMES A DAY
     Route: 055

REACTIONS (3)
  - Neoplasm malignant [Fatal]
  - Pneumonia [Fatal]
  - Gallbladder disorder [Unknown]
